FAERS Safety Report 20012415 (Version 1)
Quarter: 2021Q4

REPORT INFORMATION
  Report Type: Spontaneous
  Country: US (occurrence: US)
  Receive Date: 20211029
  Receipt Date: 20211029
  Transmission Date: 20220303
  Serious: No
  Sender: FDA-Public Use
  Company Number: US-HTU-2021US021830

PATIENT
  Age: 55 Year
  Sex: Female

DRUGS (4)
  1. MECHLORETHAMINE [Suspect]
     Active Substance: MECHLORETHAMINE
     Indication: Cutaneous T-cell lymphoma
     Dosage: UNK, 3/WEEK
     Route: 061
  2. MECHLORETHAMINE [Suspect]
     Active Substance: MECHLORETHAMINE
     Dosage: UNK, 5/WEEK
     Route: 061
  3. MECHLORETHAMINE [Suspect]
     Active Substance: MECHLORETHAMINE
     Dosage: UNK, 6/WEEK
     Route: 061
  4. MECHLORETHAMINE [Suspect]
     Active Substance: MECHLORETHAMINE
     Dosage: UNK, 3-4 TIMES PER WEEK
     Route: 061

REACTIONS (3)
  - Off label use [Not Recovered/Not Resolved]
  - Application site irritation [Recovering/Resolving]
  - Application site inflammation [Recovering/Resolving]
